FAERS Safety Report 8403976 (Version 3)
Quarter: 2012Q4

REPORT INFORMATION
  Report Type: 
  Country: US (occurrence: US)
  Receive Date: 20120214
  Receipt Date: 20121226
  Transmission Date: 20130627
  Serious: Yes (Hospitalization)
  Sender: FDA-Public Use
  Company Number: US-BAYER-2012-012015

PATIENT
  Age: 46 Year
  Sex: Female

DRUGS (8)
  1. OCELLA [Suspect]
     Indication: MENSTRUAL IRREGULARITY
     Dosage: UNK
     Dates: start: 200906, end: 20100107
  2. LISINOPRIL [Concomitant]
     Indication: BLOOD PRESSURE RAISED
     Dosage: UNK
     Dates: start: 2010
  3. NSAID^S [Concomitant]
     Dosage: UNK
     Dates: start: 1963
  4. ASCORBIC ACID [Concomitant]
     Dosage: UNK UNK,
  5. HYDROCHLOROTHIAZIDE [Concomitant]
     Indication: HYPERTENSION ARTERIAL
  6. BABY ASA [Concomitant]
  7. FAMOTIDINE [Concomitant]
     Dosage: UNK
     Dates: start: 20100112
  8. TYLENOL. [Concomitant]

REACTIONS (9)
  - Pulmonary embolism [None]
  - Deep vein thrombosis [Recovered/Resolved]
  - Injury [None]
  - Pain [None]
  - Anxiety [None]
  - Anhedonia [None]
  - Dyspnoea [None]
  - Psychological trauma [None]
  - Off label use [None]
